FAERS Safety Report 9144300 (Version 2)
Quarter: 2013Q3

REPORT INFORMATION
  Report Type: Report from Study
  Country: US (occurrence: US)
  Receive Date: 20130306
  Receipt Date: 20130730
  Transmission Date: 20140515
  Serious: Yes (Hospitalization)
  Sender: FDA-Public Use
  Company Number: US-UCBSA-018318

PATIENT
  Age: 64 Year
  Sex: Male
  Weight: 97.3 kg

DRUGS (17)
  1. LACOSAMIDE [Suspect]
     Indication: EPILEPSY
     Route: 048
     Dates: start: 20100602
  2. WARFARIN [Suspect]
     Indication: TRANSIENT ISCHAEMIC ATTACK
     Dosage: 2.5 - 5.0 MG BID
     Dates: start: 2007
  3. GLYBURIDE [Concomitant]
     Indication: TYPE 2 DIABETES MELLITUS
     Dates: start: 2007
  4. LEVEMIR FLEXPEN [Concomitant]
     Indication: TYPE 2 DIABETES MELLITUS
     Route: 058
     Dates: start: 2009
  5. LISINOPRIL W/ HYDROCHLOROTHIAZIDE [Concomitant]
     Indication: HYPERTENSION
     Dates: start: 2008
  6. OMEPRAZOLE [Concomitant]
     Indication: GASTROOESOPHAGEAL REFLUX DISEASE
     Dates: start: 2007
  7. RANITIDINE [Concomitant]
     Indication: GASTROOESOPHAGEAL REFLUX DISEASE
     Dates: start: 2004
  8. EFFEXOR XE [Concomitant]
     Indication: DEPRESSION
     Dates: start: 200409
  9. EFFEXOR XE [Concomitant]
     Indication: DEPRESSION
     Dates: start: 200909
  10. PROPRANALOL [Concomitant]
     Indication: MIGRAINE
     Dates: start: 2008
  11. PATADAY [Concomitant]
     Indication: EYE ALLERGY
     Route: 047
     Dates: start: 2007
  12. NASOCORT [Concomitant]
     Indication: SEASONAL ALLERGY
     Route: 045
     Dates: start: 2007
  13. NIACIN [Concomitant]
     Indication: VITAMIN SUPPLEMENTATION
     Dates: start: 2009
  14. VITAMIN B 2 [Concomitant]
     Indication: VITAMIN SUPPLEMENTATION
     Dates: start: 2009
  15. VITAMIN B 12 [Concomitant]
     Indication: VITAMIN SUPPLEMENTATION
     Dates: start: 2009
  16. MULTIVITAMIN [Concomitant]
     Indication: VITAMIN SUPPLEMENTATION
     Dates: start: 1966
  17. POTASSIUM [Concomitant]
     Indication: MINERAL SUPPLEMENTATION
     Dates: start: 2009

REACTIONS (1)
  - Toxicity to various agents [Recovered/Resolved]
